FAERS Safety Report 10180264 (Version 1)
Quarter: 2014Q2

REPORT INFORMATION
  Report Type: Spontaneous
  Country: US (occurrence: US)
  Receive Date: 20140519
  Receipt Date: 20140519
  Transmission Date: 20141212
  Serious: No
  Sender: FDA-Public Use
  Company Number: US-AMGEN INC.-USASP2013086816

PATIENT
  Age: 77 Year
  Sex: Female

DRUGS (1)
  1. PROLIA [Suspect]
     Indication: OSTEOPOROSIS POSTMENOPAUSAL
     Dosage: 60 MG, UNK
     Route: 065
     Dates: start: 201309

REACTIONS (6)
  - Arthritis [Unknown]
  - Bone loss [Unknown]
  - Spondylolisthesis [Unknown]
  - Intervertebral disc space narrowing [Unknown]
  - Back pain [Recovering/Resolving]
  - Bone pain [Recovering/Resolving]
